FAERS Safety Report 24807677 (Version 2)
Quarter: 2025Q1

REPORT INFORMATION
  Report Type: Spontaneous
  Country: US (occurrence: US)
  Receive Date: 20250105
  Receipt Date: 20250211
  Transmission Date: 20250408
  Serious: Yes (Hospitalization)
  Sender: JOHNSON AND JOHNSON
  Company Number: US-JNJFOC-20250105562

PATIENT
  Age: 67 Year
  Sex: Female

DRUGS (7)
  1. INVEGA SUSTENNA [Suspect]
     Active Substance: PALIPERIDONE PALMITATE
     Indication: Product used for unknown indication
     Dosage: REDUCED THIS MONTH TO 156MG
     Route: 030
     Dates: start: 202409
  2. INVEGA SUSTENNA [Suspect]
     Active Substance: PALIPERIDONE PALMITATE
  3. INVEGA SUSTENNA [Suspect]
     Active Substance: PALIPERIDONE PALMITATE
  4. ZETIA [Concomitant]
     Active Substance: EZETIMIBE
     Indication: Blood cholesterol increased
     Route: 065
     Dates: start: 2024
  5. CRESTOR [Concomitant]
     Active Substance: ROSUVASTATIN CALCIUM
     Indication: Blood cholesterol increased
     Route: 065
     Dates: start: 2023
  6. LAMICTAL [Concomitant]
     Active Substance: LAMOTRIGINE
     Indication: Bipolar disorder
     Dates: start: 2012
  7. TRILEPTAL [Concomitant]
     Active Substance: OXCARBAZEPINE
     Indication: Bipolar disorder
     Dates: start: 2012

REACTIONS (4)
  - Hospitalisation [Unknown]
  - Libido decreased [Unknown]
  - Tremor [Unknown]
  - Depression [Unknown]
